FAERS Safety Report 12832265 (Version 2)
Quarter: 2016Q4

REPORT INFORMATION
  Report Type: Report from Study
  Country: JP (occurrence: JP)
  Receive Date: 20161010
  Receipt Date: 20161017
  Transmission Date: 20170207
  Serious: Yes (Hospitalization)
  Sender: FDA-Public Use
  Company Number: JP-DEPOMED, INC.-JP-2016DEP012451

PATIENT
  Age: 73 Year
  Sex: Male
  Weight: 43.99 kg

DRUGS (13)
  1. DESYREL [Concomitant]
     Active Substance: TRAZODONE HYDROCHLORIDE
     Indication: CANCER PAIN
     Dosage: UNK
     Dates: end: 20160821
  2. LOXOPROFEN SODIUM [Concomitant]
     Active Substance: LOXOPROFEN SODIUM
     Indication: CANCER PAIN
     Dosage: UNK
     Dates: end: 20160821
  3. VERAPAMIL HCL [Concomitant]
     Active Substance: VERAPAMIL HYDROCHLORIDE
     Indication: CANCER PAIN
     Dosage: UNK
     Dates: start: 20160823
  4. TAPENTADOL HYDROCHLORIDE [Suspect]
     Active Substance: TAPENTADOL HYDROCHLORIDE
     Dosage: 250 MG, BID
     Route: 048
     Dates: start: 20160722, end: 20160821
  5. REBAMIPIDE [Concomitant]
     Active Substance: REBAMIPIDE
     Indication: PROPHYLAXIS
     Dosage: UNK
     Dates: end: 20160821
  6. TAPENTADOL HYDROCHLORIDE [Suspect]
     Active Substance: TAPENTADOL HYDROCHLORIDE
     Indication: CANCER PAIN
     Dosage: 150 MG, BID
     Route: 048
     Dates: start: 20160715, end: 20160721
  7. OXINORM [Suspect]
     Active Substance: OXYCODONE HYDROCHLORIDE
     Indication: CANCER PAIN
     Dosage: 20 MG, EVERY 3 HRS
     Route: 048
     Dates: end: 20160821
  8. AMLODIPINE BESILATE [Concomitant]
     Active Substance: AMLODIPINE BESYLATE
     Indication: HYPERTENSION
     Dosage: UNK
     Dates: end: 20160821
  9. OXINORM [Suspect]
     Active Substance: OXYCODONE HYDROCHLORIDE
     Dosage: 20 MG, EVERY 3 HRS
     Route: 048
     Dates: start: 20160714, end: 20160728
  10. BETAMETHASONE. [Concomitant]
     Active Substance: BETAMETHASONE
     Indication: CANCER PAIN
     Dosage: UNK
     Dates: end: 20160821
  11. TAKECAB [Concomitant]
     Active Substance: VONOPRAZAN FUMURATE
     Indication: PROPHYLAXIS
     Dosage: UNK
     Dates: end: 20160821
  12. SULPIRIDE [Concomitant]
     Active Substance: SULPIRIDE
     Indication: CANCER PAIN
     Dosage: UNK
     Dates: end: 20160821
  13. VALSARTAN. [Concomitant]
     Active Substance: VALSARTAN
     Indication: HYPERTENSION
     Dosage: UNK
     Dates: end: 20160821

REACTIONS (4)
  - Dyspnoea [Recovered/Resolved]
  - Dysphagia [Not Recovered/Not Resolved]
  - Constipation [Recovered/Resolved]
  - Malaise [Not Recovered/Not Resolved]

NARRATIVE: CASE EVENT DATE: 20160722
